FAERS Safety Report 19127603 (Version 1)
Quarter: 2021Q2

REPORT INFORMATION
  Report Type: Spontaneous
  Country: US (occurrence: US)
  Receive Date: 20210413
  Receipt Date: 20210413
  Transmission Date: 20210717
  Serious: No
  Sender: FDA-Public Use
  Company Number: US-ALLERGAN-2027267US

PATIENT
  Sex: Female

DRUGS (3)
  1. LEVOTHYROXINE. [Concomitant]
     Active Substance: LEVOTHYROXINE
  2. OMEPRAZOLE. [Concomitant]
     Active Substance: OMEPRAZOLE
     Indication: DYSPEPSIA
  3. LATISSE [Suspect]
     Active Substance: BIMATOPROST
     Indication: GROWTH OF EYELASHES

REACTIONS (4)
  - Inappropriate schedule of product administration [Unknown]
  - Eyelid thickening [Recovered/Resolved]
  - Swelling of eyelid [Recovered/Resolved]
  - Erythema of eyelid [Recovered/Resolved]
